FAERS Safety Report 16840063 (Version 7)
Quarter: 2020Q2

REPORT INFORMATION
  Report Type: Spontaneous
  Country: US (occurrence: US)
  Receive Date: 20190923
  Receipt Date: 20200603
  Transmission Date: 20200713
  Serious: No
  Sender: FDA-Public Use
  Company Number: US-PFIZER INC-2019411273

PATIENT
  Age: 68 Year
  Sex: Female
  Weight: 63 kg

DRUGS (4)
  1. IBRANCE [Suspect]
     Active Substance: PALBOCICLIB
     Dosage: 75 MG
     Dates: start: 20190626, end: 20200423
  2. IBRANCE [Suspect]
     Active Substance: PALBOCICLIB
     Indication: BREAST CANCER METASTATIC
     Dosage: 125 MG, CYCLIC (DAILY FOR 21 DAYS, EVERY [Q] 28 DAYS)
     Route: 048
     Dates: start: 20190912, end: 2019
  3. IBRANCE [Suspect]
     Active Substance: PALBOCICLIB
     Dosage: 125 MG, CYCLIC (21 DAYS ON, 7 DAYS OFF )
     Dates: start: 20190626
  4. IBRANCE [Suspect]
     Active Substance: PALBOCICLIB
     Dosage: 100 MG, CYCLIC (DAYS 1-21 Q 28 DAYS)
     Route: 048
     Dates: start: 2019, end: 201906

REACTIONS (18)
  - Tongue dry [Recovering/Resolving]
  - Thirst [Recovering/Resolving]
  - Mood altered [Unknown]
  - Stomatitis [Recovering/Resolving]
  - Rhinorrhoea [Recovered/Resolved]
  - Decreased appetite [Recovering/Resolving]
  - Oral discomfort [Recovering/Resolving]
  - Diarrhoea [Unknown]
  - Abdominal discomfort [Unknown]
  - Abdominal pain [Unknown]
  - Fatigue [Recovering/Resolving]
  - Headache [Unknown]
  - Dry mouth [Recovering/Resolving]
  - Lip dry [Recovering/Resolving]
  - Defaecation urgency [Unknown]
  - Nausea [Unknown]
  - Confusional state [Unknown]
  - Tongue discomfort [Recovering/Resolving]

NARRATIVE: CASE EVENT DATE: 2019
